FAERS Safety Report 4565625-1 (Version None)
Quarter: 2005Q1

REPORT INFORMATION
  Report Type: 
  Country: None (occurrence: None)
  Receive Date: 20050131
  Receipt Date: 20050120
  Transmission Date: 20050727
  Serious: Yes (Hospitalization, Other)
  Sender: FDA-Public Use
  Company Number: DE-JNJFOC-20050105258

PATIENT
  Sex: Female

DRUGS (5)
  1. RISPERDAL [Suspect]
     Route: 049
  2. RISPERDAL [Suspect]
     Route: 049
  3. MELPERON [Concomitant]
     Dosage: TAKEN AS NEEDED
  4. ACETYLSALICYLACID [Concomitant]
  5. OMEPRAZOLE [Concomitant]

REACTIONS (3)
  - CYANOSIS [None]
  - EXTRAPYRAMIDAL DISORDER [None]
  - SOMNOLENCE [None]
